FAERS Safety Report 9157329 (Version 5)
Quarter: 2013Q2

REPORT INFORMATION
  Report Type: Report from Study
  Country: GB (occurrence: GB)
  Receive Date: 20130312
  Receipt Date: 20130611
  Transmission Date: 20140414
  Serious: Yes (Other)
  Sender: FDA-Public Use
  Company Number: GB-TEVA-385368USA

PATIENT
  Age: 65 Year
  Sex: Female
  Weight: 74.5 kg

DRUGS (22)
  1. BENDAMUSTINE [Suspect]
     Indication: B-CELL LYMPHOMA
     Dosage: EVERY 4 WEEKS
     Route: 042
     Dates: start: 20120613
  2. BENDAMUSTINE [Suspect]
     Dates: start: 20121108
  3. OBINUTUZUMAB [Suspect]
     Indication: B-CELL LYMPHOMA
     Dosage: EVERY 2 MONTHS
     Route: 042
     Dates: start: 20120613, end: 20130103
  4. OBINUTUZUMAB [Suspect]
     Dosage: 250 ML WITH 4 MG/MLPRIOR
     Dates: start: 20130103
  5. PREDNISOLONE [Suspect]
     Indication: B-CELL LYMPHOMA
     Dates: start: 20130118, end: 20130201
  6. PIRITON [Concomitant]
     Indication: PREMEDICATION
     Dates: start: 20120613
  7. PARACETAMOL [Concomitant]
     Indication: PREMEDICATION
     Dates: start: 20120613
  8. HYDROCORTISONE [Concomitant]
     Indication: PREMEDICATION
     Dates: start: 20120613
  9. IBUPROFEN [Concomitant]
     Indication: PAIN
     Dates: start: 2007
  10. VENTOLIN [Concomitant]
     Indication: CHRONIC OBSTRUCTIVE PULMONARY DISEASE
     Route: 048
     Dates: start: 20110914
  11. FLUTICASONE PROPIONATE W/SALMETEROL [Concomitant]
     Indication: CHRONIC OBSTRUCTIVE PULMONARY DISEASE
     Route: 048
     Dates: start: 20130125
  12. FLUPHENAZINE DECANOATE [Concomitant]
     Indication: SCHIZOPHRENIA
     Dates: start: 1992
  13. SIMVASTATIN [Concomitant]
     Indication: HYPERCHOLESTEROLAEMIA
     Dates: start: 20111024
  14. FLUCANOL [Concomitant]
     Indication: ORAL CANDIDIASIS
     Dates: start: 20121105, end: 20130127
  15. FLUCLOXACILLIN [Concomitant]
     Dates: start: 20121220, end: 20121226
  16. ACICLOVIR [Concomitant]
     Indication: HERPES ZOSTER
     Dates: start: 20120816, end: 20130208
  17. CODEINE [Concomitant]
     Indication: HERPES ZOSTER
     Dates: start: 20120816
  18. AMITRIPTYLINE [Concomitant]
     Indication: HERPES ZOSTER
     Dates: start: 20120816
  19. ONDANSETRON [Concomitant]
     Indication: PREMEDICATION
     Dates: start: 20120711, end: 20130208
  20. CO-TRIMOXAZOLE [Concomitant]
     Dates: start: 20120711, end: 20130208
  21. AMOXICILLIN W/CLAVULANATE POTASSIUM [Concomitant]
     Dates: start: 20121220, end: 20121220
  22. FLUCLOXACILLIN [Concomitant]
     Dates: start: 20121220, end: 20121226

REACTIONS (1)
  - Pneumonitis [Recovered/Resolved]
